FAERS Safety Report 6541986-9 (Version None)
Quarter: 2010Q1

REPORT INFORMATION
  Report Type: 
  Country: None (occurrence: None)
  Receive Date: 20100119
  Receipt Date: 20100108
  Transmission Date: 20100710
  Serious: Yes (Other)
  Sender: FDA-Public Use
  Company Number: US-MYLANLABS-2010S1000382

PATIENT
  Age: 36 Year
  Sex: Male

DRUGS (14)
  1. NICOTINE [Suspect]
     Indication: EX-TOBACCO USER
     Route: 062
     Dates: start: 20091201, end: 20091201
  2. NICOTINE [Suspect]
     Route: 062
     Dates: start: 20091201
  3. CLORAZEPATE DIPOTASSIUM TABLETS, USP [Suspect]
     Indication: CONVULSION
     Route: 048
     Dates: start: 19990101
  4. CLORAZEPATE DIPOTASSIUM TABLETS, USP [Suspect]
     Route: 048
  5. TEGRETOL [Suspect]
     Indication: CONVULSION
     Route: 048
     Dates: start: 19990101
  6. TEGRETOL [Suspect]
     Route: 048
  7. DIAMOX SRC [Suspect]
     Indication: CONVULSION
     Route: 048
     Dates: start: 19990101
  8. DIAMOX SRC [Suspect]
     Route: 048
  9. GABITRIL [Suspect]
     Indication: CONVULSION
     Route: 048
     Dates: start: 19990101
  10. GABITRIL [Suspect]
     Route: 048
  11. ATIVAN [Suspect]
     Indication: CONVULSION
     Route: 048
     Dates: start: 19990101
  12. ATIVAN [Suspect]
     Route: 048
  13. PHENERGAN HCL [Suspect]
     Indication: NAUSEA
     Route: 048
     Dates: start: 19990101
  14. PHENERGAN HCL [Suspect]
     Route: 048

REACTIONS (4)
  - DIZZINESS [None]
  - NAUSEA [None]
  - PARTIAL SEIZURES [None]
  - SOMNOLENCE [None]
